FAERS Safety Report 14788846 (Version 1)
Quarter: 2018Q2

REPORT INFORMATION
  Report Type: Spontaneous
  Country: NO (occurrence: NO)
  Receive Date: 20180423
  Receipt Date: 20180423
  Transmission Date: 20180711
  Serious: Yes (Other)
  Sender: FDA-Public Use
  Company Number: NO-BRISTOL-MYERS SQUIBB COMPANY-BMS-2018-033251

PATIENT
  Sex: Female

DRUGS (1)
  1. ORENCIA [Suspect]
     Active Substance: ABATACEPT
     Indication: RHEUMATOID ARTHRITIS
     Dosage: A TOTAL OF 2 INJECTIONS: FIRST INJECTION 25/02/2018 AND SECOND (AND LAST) INJECTION 05/03/2018.
     Route: 042
     Dates: start: 20180225, end: 20180305

REACTIONS (6)
  - Gait inability [Unknown]
  - Myalgia [Unknown]
  - Arthralgia [Unknown]
  - Paradoxical drug reaction [Unknown]
  - Joint swelling [Unknown]
  - Musculoskeletal stiffness [Unknown]

NARRATIVE: CASE EVENT DATE: 20180227
